FAERS Safety Report 5928537-4 (Version None)
Quarter: 2008Q4

REPORT INFORMATION
  Report Type: 
  Country: None (occurrence: None)
  Receive Date: 20081023
  Receipt Date: 20081017
  Transmission Date: 20090506
  Serious: Yes (Other)
  Sender: FDA-Public Use
  Company Number: US-ASTRAZENECA-2008UW23048

PATIENT
  Age: 61 Year
  Sex: Female
  Weight: 57.2 kg

DRUGS (2)
  1. CRESTOR [Suspect]
     Indication: BLOOD CHOLESTEROL INCREASED
     Route: 048
  2. VITAMIN [Concomitant]

REACTIONS (3)
  - HEPATOMEGALY [None]
  - WAIST CIRCUMFERENCE INCREASED [None]
  - WEIGHT INCREASED [None]
